FAERS Safety Report 18800354 (Version 1)
Quarter: 2021Q1

REPORT INFORMATION
  Report Type: Spontaneous
  Country: US (occurrence: US)
  Receive Date: 20210128
  Receipt Date: 20210128
  Transmission Date: 20210419
  Serious: Yes (Hospitalization)
  Sender: FDA-Public Use
  Company Number: None

PATIENT
  Age: 67 Year
  Sex: Male
  Weight: 75.8 kg

DRUGS (16)
  1. VALPROIC ACID. [Suspect]
     Active Substance: VALPROIC ACID
     Indication: MYELODYSPLASTIC SYNDROME
     Route: 048
     Dates: start: 20201102, end: 20210121
  2. TRIAMCINOLONE ACETONIDE 0.1 % CREAM BID [Concomitant]
  3. ACYCLOVIR 400 MG PO BID [Concomitant]
  4. ATOVAQUONE  1500 MG PO QD [Concomitant]
  5. URSODIOL 300 MG PO TID [Concomitant]
  6. AMLODIPINE 2.5 MG PO QD [Concomitant]
  7. POSACONAZOLE 3 TABS PO QD [Concomitant]
  8. AZACITIDINE. [Suspect]
     Active Substance: AZACITIDINE
     Indication: MYELODYSPLASTIC SYNDROME
     Route: 058
     Dates: start: 20201102, end: 20201218
  9. LETERMOVIR 480 MG PO QD [Concomitant]
  10. MULTIPLE VITAMIN PO QD [Concomitant]
  11. TAMSULOSIN 0.4 MG PO QD [Concomitant]
  12. FOLIC ACID 1 MG PO BID [Concomitant]
  13. ONDANSETRON 8 MG PO Q8H PRN [Concomitant]
  14. PANTOPRAZOLE 40 MG PO QD [Concomitant]
  15. TACROLIMUS 1 MG PO QD [Concomitant]
  16. TRAMADOL  50 MG PO Q6H PRN [Concomitant]

REACTIONS (4)
  - COVID-19 pneumonia [None]
  - Inflammatory marker increased [None]
  - Fibrin D dimer increased [None]
  - SARS-CoV-2 test positive [None]

NARRATIVE: CASE EVENT DATE: 20210121
